FAERS Safety Report 20618462 (Version 2)
Quarter: 2022Q2

REPORT INFORMATION
  Report Type: Report from Study
  Country: US (occurrence: US)
  Receive Date: 20220321
  Receipt Date: 20220530
  Transmission Date: 20220720
  Serious: Yes (Other)
  Sender: FDA-Public Use
  Company Number: US-ABBVIE-22K-163-4322377-00

PATIENT
  Sex: Female

DRUGS (5)
  1. HUMIRA [Suspect]
     Active Substance: ADALIMUMAB
     Indication: Psoriatic arthropathy
     Route: 058
     Dates: start: 2019
  2. LOSARTAN POTASSIUM [Concomitant]
     Active Substance: LOSARTAN POTASSIUM
     Indication: Blood pressure measurement
  3. AMLODIPINE [Concomitant]
     Active Substance: AMLODIPINE BESYLATE
     Indication: Blood pressure measurement
  4. METHOTREXATE [Concomitant]
     Active Substance: METHOTREXATE
     Indication: Psoriatic arthropathy
  5. FOLIC ACID [Concomitant]
     Active Substance: FOLIC ACID
     Indication: Supplementation therapy
     Dosage: SUPPLEMENT FOR METHOTREXATE

REACTIONS (17)
  - Neoplasm progression [Not Recovered/Not Resolved]
  - Helicobacter infection [Recovered/Resolved]
  - Rash [Not Recovered/Not Resolved]
  - Abdominal pain upper [Recovering/Resolving]
  - Autoimmune disorder [Not Recovered/Not Resolved]
  - Weight decreased [Unknown]
  - Dehydration [Unknown]
  - Cestode infection [Recovered/Resolved]
  - Clostridium difficile infection [Recovered/Resolved]
  - Gastroenteritis norovirus [Recovered/Resolved]
  - SARS-CoV-2 test positive [Recovered/Resolved]
  - Pain [Not Recovered/Not Resolved]
  - Pruritus [Unknown]
  - Burning sensation [Not Recovered/Not Resolved]
  - Pain [Not Recovered/Not Resolved]
  - Myalgia [Not Recovered/Not Resolved]
  - Decreased appetite [Recovered/Resolved]

NARRATIVE: CASE EVENT DATE: 20200101
